FAERS Safety Report 4539312-X (Version None)
Quarter: 2004Q4

REPORT INFORMATION
  Report Type: 
  Country: None (occurrence: None)
  Receive Date: 20041223
  Receipt Date: 20041217
  Transmission Date: 20050328
  Serious: Yes (Other)
  Sender: FDA-Public Use
  Company Number: MC200400914

PATIENT
  Age: 86 Year
  Sex: Female

DRUGS (1)
  1. ANGIOMAX [Suspect]

REACTIONS (2)
  - ARTERIAL HAEMORRHAGE [None]
  - PERIPHERAL ARTERY DISSECTION [None]
